FAERS Safety Report 6355932-4 (Version None)
Quarter: 2009Q3

REPORT INFORMATION
  Report Type: 
  Country: None (occurrence: None)
  Receive Date: 20090914
  Receipt Date: 20090914
  Transmission Date: 20100115
  Serious: Yes (Other)
  Sender: FDA-Public Use
  Company Number: None

PATIENT
  Age: 73 Year
  Sex: Female
  Weight: 74.8435 kg

DRUGS (9)
  1. BYETTA [Suspect]
     Indication: DIABETES MELLITUS
     Dosage: 5MCG BID SQ
     Route: 058
     Dates: start: 20090817, end: 20090824
  2. ASPIRIN [Concomitant]
  3. CRANBERRY CONCENTRATE [Concomitant]
  4. HUMALOG [Concomitant]
  5. CCL [Concomitant]
  6. METFORMIN HCL [Concomitant]
  7. NEXIUM [Concomitant]
  8. QUINAPRIL [Concomitant]
  9. TEMAZEPAM [Concomitant]

REACTIONS (3)
  - CONDITION AGGRAVATED [None]
  - DIPLOPIA [None]
  - EYELID PTOSIS [None]
